FAERS Safety Report 7492568-6 (Version None)
Quarter: 2011Q2

REPORT INFORMATION
  Report Type: 
  Country: None (occurrence: None)
  Receive Date: 20110519
  Receipt Date: 20110509
  Transmission Date: 20111010
  Serious: Yes (Other)
  Sender: FDA-Public Use
  Company Number: IT-BAYER-2011-042709

PATIENT
  Age: 30 Year
  Sex: Male

DRUGS (1)
  1. NAPROXEN SODIUM [Suspect]
     Indication: DENTAL OPERATION
     Dosage: 550 MG, ONCE
     Route: 048
     Dates: start: 20110312, end: 20110312

REACTIONS (3)
  - CHEST PAIN [None]
  - RASH GENERALISED [None]
  - FACE OEDEMA [None]
